FAERS Safety Report 26044004 (Version 1)
Quarter: 2025Q4

REPORT INFORMATION
  Report Type: Spontaneous
  Country: CN (occurrence: CN)
  Receive Date: 20251114
  Receipt Date: 20251114
  Transmission Date: 20260118
  Serious: Yes (Hospitalization)
  Sender: GLAXOSMITHKLINE
  Company Number: CN-GSK-CN2025CHI135260

PATIENT
  Age: 71 Year
  Sex: Female
  Weight: 70 kg

DRUGS (6)
  1. SERETIDE [Suspect]
     Active Substance: FLUTICASONE PROPIONATE\SALMETEROL XINAFOATE
     Indication: Chronic obstructive pulmonary disease
     Dosage: 1 PUFF(S), QD
  2. SERETIDE [Suspect]
     Active Substance: FLUTICASONE PROPIONATE\SALMETEROL XINAFOATE
     Indication: Chronic obstructive pulmonary disease
     Dosage: 1 PUFF(S), QD
  3. SERETIDE [Suspect]
     Active Substance: FLUTICASONE PROPIONATE\SALMETEROL XINAFOATE
     Dosage: UNK
  4. SERETIDE [Suspect]
     Active Substance: FLUTICASONE PROPIONATE\SALMETEROL XINAFOATE
     Dosage: 1 PUFF(S), BID
  5. METHOXYPHENAMINE [Concomitant]
     Active Substance: METHOXYPHENAMINE
     Indication: Chronic obstructive pulmonary disease
     Dosage: UNK
  6. MONTELUKAST SODIUM [Concomitant]
     Active Substance: MONTELUKAST SODIUM
     Indication: Chronic obstructive pulmonary disease
     Dosage: UNK

REACTIONS (3)
  - Chronic obstructive pulmonary disease [Recovering/Resolving]
  - Wrong technique in device usage process [Unknown]
  - Off label use [Unknown]

NARRATIVE: CASE EVENT DATE: 20251017
